FAERS Safety Report 4787804-0 (Version None)
Quarter: 2005Q3

REPORT INFORMATION
  Report Type: 
  Country: None (occurrence: None)
  Receive Date: 20050914
  Receipt Date: 20041203
  Transmission Date: 20060218
  Serious: Yes (Death)
  Sender: FDA-Public Use
  Company Number: 163-20785-04120111

PATIENT
  Age: 45 Year
  Sex: Male

DRUGS (5)
  1. THALOMID [Suspect]
     Indication: RENAL CELL CARCINOMA STAGE UNSPECIFIED
     Dosage: 150 MG - 200 MG, DAILY, ORAL
     Route: 048
     Dates: start: 20040714, end: 20041122
  2. DECADRON [Concomitant]
  3. MIRALAX [Concomitant]
  4. AUGMENTIN '125' [Concomitant]
  5. OXYGEN (OXYGEN) [Concomitant]

REACTIONS (5)
  - BRONCHITIS [None]
  - DEATH [None]
  - DISEASE PROGRESSION [None]
  - METASTASES TO LUNG [None]
  - PLEURAL EFFUSION [None]
